FAERS Safety Report 13814117 (Version 3)
Quarter: 2017Q4

REPORT INFORMATION
  Report Type: Spontaneous
  Country: IE (occurrence: IE)
  Receive Date: 20170731
  Receipt Date: 20171024
  Transmission Date: 20180320
  Serious: Yes (Hospitalization, Other)
  Sender: FDA-Public Use
  Company Number: IE-ORION CORPORATION ORION PHARMA-ENTC2017-0352

PATIENT
  Sex: Male

DRUGS (1)
  1. STALEVO [Suspect]
     Active Substance: CARBIDOPA\ENTACAPONE\LEVODOPA
     Dosage: STRENGTH: 125/31.25/200 MG
     Route: 048
     Dates: start: 20170603, end: 20170706

REACTIONS (11)
  - Myalgia [Recovered/Resolved]
  - Wrong technique in product usage process [Unknown]
  - Musculoskeletal pain [Recovered/Resolved]
  - Tendon rupture [Recovered/Resolved]
  - Groin pain [Recovered/Resolved]
  - Nerve compression [Recovered/Resolved]
  - Rhabdomyolysis [Recovered/Resolved]
  - Musculoskeletal injury [Recovered/Resolved]
  - Blood creatine phosphokinase increased [Recovered/Resolved]
  - Gait disturbance [Recovered/Resolved]
  - Spinal pain [Recovered/Resolved]

NARRATIVE: CASE EVENT DATE: 201706
